FAERS Safety Report 14069882 (Version 2)
Quarter: 2017Q4

REPORT INFORMATION
  Report Type: Report from Study
  Country: BR (occurrence: BR)
  Receive Date: 20171010
  Receipt Date: 20171024
  Transmission Date: 20180321
  Serious: Yes (Other)
  Sender: FDA-Public Use
  Company Number: PHHY2017BR147661

PATIENT
  Sex: Male

DRUGS (3)
  1. AZORGA [Suspect]
     Active Substance: BRINZOLAMIDE\TIMOLOL MALEATE
     Indication: EYE DISORDER
     Dosage: 1 GTT, Q12H
     Route: 047
  2. TRAVATAN [Suspect]
     Active Substance: TRAVOPROST
     Indication: CATARACT
  3. TRAVATAN [Suspect]
     Active Substance: TRAVOPROST
     Indication: GLAUCOMA
     Dosage: UNK UNK, QD
     Route: 047

REACTIONS (5)
  - Hypoacusis [Not Recovered/Not Resolved]
  - Visual impairment [Recovering/Resolving]
  - Pneumonia [Unknown]
  - Deafness unilateral [Unknown]
  - Bronchitis [Unknown]
